FAERS Safety Report 16370745 (Version 1)
Quarter: 2019Q3

REPORT INFORMATION
  Report Type: Spontaneous
  Country: US (occurrence: US)
  Receive Date: 20190529
  Receipt Date: 20190529
  Transmission Date: 20191004
  Serious: Yes (Life-Threatening, Disabling)
  Sender: FDA-Public Use
  Company Number: None

PATIENT
  Age: 25 Year
  Sex: Female
  Weight: 56.7 kg

DRUGS (5)
  1. LEXAPRO [Concomitant]
     Active Substance: ESCITALOPRAM OXALATE
  2. ZOLOFT [Concomitant]
     Active Substance: SERTRALINE HYDROCHLORIDE
  3. WELLBUTRIN [Concomitant]
     Active Substance: BUPROPION HYDROCHLORIDE
  4. MIRENA [Suspect]
     Active Substance: LEVONORGESTREL
  5. XULANE MAXAL [Concomitant]

REACTIONS (44)
  - Asthenopia [None]
  - Vomiting [None]
  - Vision blurred [None]
  - Vertigo [None]
  - Menorrhagia [None]
  - Breast pain [None]
  - Emotional poverty [None]
  - Complication associated with device [None]
  - Decreased appetite [None]
  - Depression [None]
  - Abdominal discomfort [None]
  - Panic reaction [None]
  - Irritable bowel syndrome [None]
  - Gastrointestinal disorder [None]
  - Diplopia [None]
  - Ear pain [None]
  - Abdominal distension [None]
  - Muscle spasms [None]
  - Pain [None]
  - Asthenia [None]
  - Suicidal ideation [None]
  - Migraine [None]
  - Balance disorder [None]
  - Abdominal pain [None]
  - Tremor [None]
  - Muscle twitching [None]
  - Irritability [None]
  - Gastrointestinal pain [None]
  - Dizziness [None]
  - Eye pain [None]
  - Hypovitaminosis [None]
  - Tinnitus [None]
  - Memory impairment [None]
  - Back pain [None]
  - Nausea [None]
  - Insomnia [None]
  - Loss of libido [None]
  - Swelling face [None]
  - Night sweats [None]
  - Anxiety [None]
  - Musculoskeletal stiffness [None]
  - Ear congestion [None]
  - Sluggishness [None]
  - Pruritus [None]

NARRATIVE: CASE EVENT DATE: 20181002
